FAERS Safety Report 14598039 (Version 6)
Quarter: 2019Q2

REPORT INFORMATION
  Report Type: Spontaneous
  Country: US (occurrence: US)
  Receive Date: 20180305
  Receipt Date: 20190409
  Transmission Date: 20190711
  Serious: No
  Sender: FDA-Public Use
  Company Number: US-BRISTOL-MYERS SQUIBB COMPANY-BMS-2018-020022

PATIENT
  Age: 71 Year
  Sex: Female
  Weight: 74.84 kg

DRUGS (1)
  1. ORENCIA [Suspect]
     Active Substance: ABATACEPT
     Indication: RHEUMATOID ARTHRITIS
     Dosage: 125 MG, QWK
     Route: 058
     Dates: start: 201609

REACTIONS (6)
  - Seasonal allergy [Unknown]
  - Gastroenteritis viral [Unknown]
  - Oral disorder [Unknown]
  - Anaemia [Unknown]
  - Sinusitis [Unknown]
  - Infection [Unknown]

NARRATIVE: CASE EVENT DATE: 201808
